FAERS Safety Report 7500472-X (Version None)
Quarter: 2011Q2

REPORT INFORMATION
  Report Type: 
  Country: None (occurrence: None)
  Receive Date: 20110524
  Receipt Date: 20110414
  Transmission Date: 20111010
  Serious: No
  Sender: FDA-Public Use
  Company Number: US-BRISTOL-MYERS SQUIBB COMPANY-15674963

PATIENT
  Sex: Female

DRUGS (1)
  1. ONGLYZA [Suspect]
     Dosage: DURATION: 3 DAYS

REACTIONS (1)
  - DYSPNOEA [None]
